FAERS Safety Report 20609290 (Version 1)
Quarter: 2022Q1

REPORT INFORMATION
  Report Type: Spontaneous
  Country: US (occurrence: US)
  Receive Date: 20220317
  Receipt Date: 20220317
  Transmission Date: 20220423
  Serious: No
  Sender: FDA-Public Use
  Company Number: US-Blueprint Medicines Corporation-SP-US-2022-000694

PATIENT
  Age: 67 Year
  Sex: Female

DRUGS (2)
  1. AYVAKIT [Suspect]
     Active Substance: AVAPRITINIB
     Indication: Systemic mastocytosis
     Dosage: TAKE 25 MG 1 TABLET BY MOUTH DAILY ALONG WITH 1 50MG TABLET DAILY FOR A TOTAL OF 75MG DAILY
     Route: 048
     Dates: start: 20210714
  2. AYVAKIT [Suspect]
     Active Substance: AVAPRITINIB
     Dosage: TAKE 25 MG 1 TABLET BY MOUTH DAILY ALONG WITH 1 50MG TABLET DAILY FOR A TOTAL OF 75MG DAILY
     Route: 048
     Dates: start: 20210714

REACTIONS (1)
  - Swelling face [Recovering/Resolving]

NARRATIVE: CASE EVENT DATE: 20220227
